FAERS Safety Report 11520549 (Version 1)
Quarter: 2015Q3

REPORT INFORMATION
  Report Type: Spontaneous
  Country: US (occurrence: US)
  Receive Date: 20150918
  Receipt Date: 20150918
  Transmission Date: 20151125
  Serious: No
  Sender: FDA-Public Use
  Company Number: US-ROCHE-756086

PATIENT
  Age: 48 Year
  Sex: Female

DRUGS (3)
  1. RIBASPHERE RIBAPAK [Suspect]
     Active Substance: RIBAVIRIN
     Indication: HEPATITIS C
     Dosage: PM DOSE
     Route: 048
  2. GLIPIZIDE. [Concomitant]
     Active Substance: GLIPIZIDE
     Indication: TYPE 2 DIABETES MELLITUS
     Route: 065
  3. PEGASYS [Suspect]
     Active Substance: PEGINTERFERON ALFA-2A
     Indication: HEPATITIS C
     Dosage: FORM: PRE-FILLED SYRINGE
     Route: 058

REACTIONS (6)
  - Feeling of body temperature change [Unknown]
  - Insomnia [Unknown]
  - Nausea [Unknown]
  - Pain [Unknown]
  - Incorrect dose administered [Unknown]
  - Vomiting [Unknown]

NARRATIVE: CASE EVENT DATE: 20110121
